FAERS Safety Report 4856723-3 (Version None)
Quarter: 2005Q4

REPORT INFORMATION
  Report Type: 
  Country: None (occurrence: None)
  Receive Date: 20051219
  Receipt Date: 20050118
  Transmission Date: 20060501
  Serious: No
  Sender: FDA-Public Use
  Company Number: US-GLAXOSMITHKLINE-A0540986A

PATIENT
  Sex: Male

DRUGS (2)
  1. NICODERM CQ [Suspect]
  2. NICODERM CQ [Suspect]

REACTIONS (5)
  - ANXIETY [None]
  - CHEST PAIN [None]
  - HYPOAESTHESIA [None]
  - MENTAL IMPAIRMENT [None]
  - NAUSEA [None]
